FAERS Safety Report 9384826 (Version 1)
Quarter: 2013Q3

REPORT INFORMATION
  Report Type: Spontaneous
  Country: IT (occurrence: IT)
  Receive Date: 20130705
  Receipt Date: 20130705
  Transmission Date: 20140515
  Serious: Yes (Hospitalization)
  Sender: FDA-Public Use
  Company Number: IT-BAYER-2013-079839

PATIENT
  Age: 84 Year
  Sex: Male

DRUGS (5)
  1. CARDIOASPIRIN [Suspect]
     Indication: THROMBOSIS PROPHYLAXIS
     Dosage: DAILY DOSE 100 MG
     Route: 048
     Dates: start: 20130101, end: 20130524
  2. CARDIOASPIRIN [Suspect]
     Indication: THROMBOSIS PROPHYLAXIS
     Dosage: UNK
     Route: 048
  3. VOLTAREN [Suspect]
     Indication: OSTEOARTHRITIS
     Dosage: DAILY DOSE 1 DF
     Route: 048
     Dates: start: 20130518, end: 20130519
  4. ZYPREXA [Concomitant]
     Dosage: UNK
     Route: 048
  5. ZOLOFT [Concomitant]
     Dosage: UNK

REACTIONS (3)
  - Hemiplegia [Unknown]
  - Fall [Unknown]
  - Basal ganglia haemorrhage [Unknown]
